FAERS Safety Report 9021289 (Version 1)
Quarter: 2013Q1

REPORT INFORMATION
  Report Type: Spontaneous
  Country: US (occurrence: US)
  Receive Date: 20130119
  Receipt Date: 20130119
  Transmission Date: 20140127
  Serious: No
  Sender: FDA-Public Use
  Company Number: US-ALLERGAN-1202969US

PATIENT
  Sex: Female

DRUGS (3)
  1. BOTOX COSMETIC [Suspect]
     Indication: SKIN WRINKLING
     Dosage: 24 UNITS, SINGLE
     Route: 030
     Dates: start: 20120224, end: 20120224
  2. JUVEDERM [Suspect]
     Indication: SKIN COSMETIC PROCEDURE
     Dosage: UNK
     Dates: start: 20120224, end: 20120224
  3. LIDOCAINE [Suspect]
     Indication: PRODUCT USED FOR UNKNOWN INDICATION
     Dosage: UNK
     Dates: start: 20120224, end: 20120224

REACTIONS (4)
  - Tooth discolouration [Not Recovered/Not Resolved]
  - Abnormal sensation in eye [Unknown]
  - Hypoaesthesia eye [Unknown]
  - Diplopia [Recovered/Resolved]
